FAERS Safety Report 20543090 (Version 2)
Quarter: 2022Q2

REPORT INFORMATION
  Report Type: Spontaneous
  Country: US (occurrence: US)
  Receive Date: 20220302
  Receipt Date: 20220420
  Transmission Date: 20220721
  Serious: Yes (Other)
  Sender: FDA-Public Use
  Company Number: US-PFIZER INC-202101041329

PATIENT
  Age: 48 Year
  Sex: Female

DRUGS (4)
  1. XELJANZ [Suspect]
     Active Substance: TOFACITINIB CITRATE
     Indication: Rheumatoid arthritis
     Dosage: 5 MG, 2X/DAY
     Route: 048
     Dates: start: 20190724
  2. GABAPENTIN [Concomitant]
     Active Substance: GABAPENTIN
     Dosage: UNK
  3. HYDROCODONE [Concomitant]
     Active Substance: HYDROCODONE
     Dosage: UNK
  4. METHOCARBAMOL [Concomitant]
     Active Substance: METHOCARBAMOL
     Dosage: UNK

REACTIONS (18)
  - Intervertebral disc protrusion [Unknown]
  - Condition aggravated [Unknown]
  - Back pain [Unknown]
  - Product dose omission issue [Unknown]
  - Gastroenteritis viral [Recovered/Resolved]
  - Enterocolitis viral [Recovered/Resolved]
  - Sacral pain [Unknown]
  - Bursitis [Unknown]
  - Weight decreased [Unknown]
  - Tendonitis [Unknown]
  - Hypoaesthesia [Unknown]
  - Arthritis [Recovering/Resolving]
  - Frustration tolerance decreased [Unknown]
  - Discouragement [Unknown]
  - Fatigue [Recovering/Resolving]
  - Contusion [Unknown]
  - Pain in extremity [Recovering/Resolving]
  - Fall [Unknown]

NARRATIVE: CASE EVENT DATE: 20210601
